FAERS Safety Report 5574389-4 (Version None)
Quarter: 2007Q4

REPORT INFORMATION
  Report Type: 
  Country: None (occurrence: None)
  Receive Date: 20071227
  Receipt Date: 20071217
  Transmission Date: 20080405
  Serious: Yes (Other)
  Sender: FDA-Public Use
  Company Number: US-JNJFOC-20071204931

PATIENT
  Age: 74 Year
  Sex: Female
  Weight: 80.74 kg

DRUGS (2)
  1. ELMIRON [Suspect]
     Indication: CYSTITIS INTERSTITIAL
     Route: 048
  2. GLUCOSAMINE [Concomitant]
     Indication: ARTHROPATHY
     Route: 048

REACTIONS (3)
  - BLADDER DISORDER [None]
  - CYSTITIS INTERSTITIAL [None]
  - GALLBLADDER NON-FUNCTIONING [None]
